FAERS Safety Report 6849668-0 (Version None)
Quarter: 2010Q3

REPORT INFORMATION
  Report Type: 
  Country: None (occurrence: None)
  Receive Date: 20100716
  Receipt Date: 20071002
  Transmission Date: 20110219
  Serious: No
  Sender: FDA-Public Use
  Company Number: US-PFIZER INC-2007084325

PATIENT
  Sex: Female
  Weight: 83.6 kg

DRUGS (3)
  1. CHANTIX [Suspect]
     Indication: SMOKING CESSATION THERAPY
     Dates: start: 20070701, end: 20070901
  2. PREMPRO [Concomitant]
  3. IBUPROFEN [Concomitant]
     Indication: MYALGIA

REACTIONS (6)
  - ABDOMINAL PAIN LOWER [None]
  - ANGER [None]
  - FLATULENCE [None]
  - OEDEMA PERIPHERAL [None]
  - SWELLING FACE [None]
  - WEIGHT FLUCTUATION [None]
